FAERS Safety Report 12289120 (Version 2)
Quarter: 2016Q2

REPORT INFORMATION
  Report Type: Spontaneous
  Country: US (occurrence: US)
  Receive Date: 20160421
  Receipt Date: 20160531
  Transmission Date: 20160815
  Serious: No
  Sender: FDA-Public Use
  Company Number: US-009507513-1603USA011965

PATIENT

DRUGS (2)
  1. INTEGRILIN [Suspect]
     Active Substance: EPTIFIBATIDE
     Dosage: 0.5 MCG/KG/MIN POST-PROCEDURALLY
     Route: 041
  2. INTEGRILIN [Suspect]
     Active Substance: EPTIFIBATIDE
     Indication: ANEURYSM REPAIR
     Dosage: 135 MCG/KG, ONCE
     Route: 040

REACTIONS (1)
  - Haematoma [Unknown]
